FAERS Safety Report 20208940 (Version 1)
Quarter: 2021Q4

REPORT INFORMATION
  Report Type: Spontaneous
  Country: TH (occurrence: TH)
  Receive Date: 20211220
  Receipt Date: 20211220
  Transmission Date: 20220304
  Serious: Yes (Hospitalization)
  Sender: FDA-Public Use
  Company Number: TH-ORGANON-O2112THA000490

PATIENT
  Age: 44 Month
  Sex: Male

DRUGS (4)
  1. AERIUS (DESLORATADINE) [Suspect]
     Active Substance: DESLORATADINE
     Indication: Nasal congestion
     Dosage: 2.5 ML OF 0.5 MG/ML
     Route: 048
     Dates: start: 20211201, end: 20211202
  2. AERIUS (DESLORATADINE) [Suspect]
     Active Substance: DESLORATADINE
     Indication: Conjunctivitis allergic
  3. ZYRTEC [Concomitant]
     Active Substance: CETIRIZINE HYDROCHLORIDE
     Indication: Nasal congestion
     Dosage: UNK
     Route: 048
     Dates: start: 20211202
  4. ZYRTEC [Concomitant]
     Active Substance: CETIRIZINE HYDROCHLORIDE
     Indication: Conjunctivitis allergic

REACTIONS (3)
  - Pyrexia [Recovered/Resolved]
  - Gastrointestinal infection [Recovering/Resolving]
  - Urinary tract infection [Recovering/Resolving]

NARRATIVE: CASE EVENT DATE: 20211201
